FAERS Safety Report 5043394-9 (Version None)
Quarter: 2006Q3

REPORT INFORMATION
  Report Type: 
  Country: None (occurrence: None)
  Receive Date: 20060705
  Receipt Date: 20060606
  Transmission Date: 20061208
  Serious: Yes (Other)
  Sender: FDA-Public Use
  Company Number: CH-MERCK-0606CHE00002

PATIENT
  Age: 60 Year
  Sex: Female
  Weight: 50 kg

DRUGS (4)
  1. FOSAMAX [Suspect]
     Indication: OSTEOPOROSIS
     Route: 048
     Dates: start: 20050814, end: 20050918
  2. FOSAMAX [Suspect]
     Route: 048
     Dates: start: 20050101, end: 20050101
  3. RISEDRONATE SODIUM [Suspect]
     Indication: OSTEOPOROSIS
     Route: 048
     Dates: start: 20051023, end: 20051120
  4. CALCIUM GLUBIONATE [Concomitant]
     Indication: OSTEOPOROSIS
     Route: 048
     Dates: start: 20050101

REACTIONS (4)
  - CROSS SENSITIVITY REACTION [None]
  - ERUCTATION [None]
  - FLATULENCE [None]
  - OESOPHAGITIS [None]
